FAERS Safety Report 9112363 (Version 1)
Quarter: 2013Q1

REPORT INFORMATION
  Report Type: Spontaneous
  Country: US (occurrence: US)
  Receive Date: 20130219
  Receipt Date: 20130219
  Transmission Date: 20140127
  Serious: No
  Sender: FDA-Public Use
  Company Number: US-BRISTOL-MYERS SQUIBB COMPANY-16855587

PATIENT
  Age: 48 Year
  Sex: Female
  Weight: 63.49 kg

DRUGS (23)
  1. ABATACEPT SUBQ INJECTION 125MG/ML [Suspect]
     Indication: SYSTEMIC LUPUS ERYTHEMATOSUS
     Dosage: 1DF=125MG/ML,LAST INJ:11AUG12,18AUG12,NDC#00032188319,FOR 5WEEKS
     Route: 058
     Dates: start: 201206
  2. ABATACEPT SUBQ INJECTION 125MG/ML [Suspect]
     Indication: RHEUMATOID ARTHRITIS
     Dosage: 1DF=125MG/ML,LAST INJ:11AUG12,18AUG12,NDC#00032188319,FOR 5WEEKS
     Route: 058
     Dates: start: 201206
  3. FENTANYL PATCH [Concomitant]
  4. LORTAB [Concomitant]
  5. SOMA [Concomitant]
  6. IBUPROFEN [Concomitant]
  7. TYLENOL [Concomitant]
  8. MARINOL [Concomitant]
  9. LIDOCAINE [Concomitant]
     Dosage: LIDOCAINE PATCHES AND STRONGER FORMULA 10% LIDOCAINE CR?ME ON HANDS
  10. PLAQUENIL [Concomitant]
  11. METHOTREXATE [Concomitant]
  12. METHYLPREDNISOLONE [Concomitant]
  13. CYMBALTA [Concomitant]
  14. MEGACE [Concomitant]
  15. LYRICA [Concomitant]
  16. FOLIC ACID [Concomitant]
  17. VITAMIN D [Concomitant]
  18. MULTIVITAMINS [Concomitant]
  19. POTASSIUM [Concomitant]
  20. K-DUR [Concomitant]
  21. PRO-AIR [Concomitant]
  22. ADVAIR [Concomitant]
  23. FLUTICASONE PROPIONATE [Concomitant]

REACTIONS (2)
  - Drug ineffective [Not Recovered/Not Resolved]
  - Off label use [Unknown]
